FAERS Safety Report 26087274 (Version 1)
Quarter: 2025Q4

REPORT INFORMATION
  Report Type: Spontaneous
  Country: US (occurrence: None)
  Receive Date: 20251125
  Receipt Date: 20251125
  Transmission Date: 20260117
  Serious: No
  Sender: FDA-CTU
  Company Number: None

PATIENT
  Age: 67 Year
  Sex: Female
  Weight: 65.25 kg

DRUGS (5)
  1. EVENITY [Suspect]
     Active Substance: ROMOSOZUMAB-AQQG
  2. ESTRADIOL [Concomitant]
     Active Substance: ESTRADIOL
  3. ASMANEX [Concomitant]
     Active Substance: MOMETASONE FUROATE
  4. VITAMINS [Concomitant]
     Active Substance: VITAMINS
  5. Vit C + cal mag D [Concomitant]

REACTIONS (6)
  - Injection site swelling [None]
  - Dizziness [None]
  - Disturbance in attention [None]
  - Fatigue [None]
  - Vertigo [None]
  - Injection related reaction [None]

NARRATIVE: CASE EVENT DATE: 20251124
